FAERS Safety Report 16898653 (Version 1)
Quarter: 2019Q4

REPORT INFORMATION
  Report Type: Spontaneous
  Country: US (occurrence: US)
  Receive Date: 20191009
  Receipt Date: 20191009
  Transmission Date: 20200122
  Serious: No
  Sender: FDA-Public Use
  Company Number: US-CURIUM-200100126

PATIENT
  Age: 39 Year

DRUGS (2)
  1. SODIUM PERTECHNETATE TC 99M [Suspect]
     Active Substance: TECHNETIUM TC-99M SODIUM PERTECHNETATE
     Dosage: NUMBER OF SEPARATE DOSAGES: 1
  2. TECHNESCAN PYP [Suspect]
     Active Substance: TECHNETIUM TC-99M PYROPHOSPHATE
     Dosage: NUMBER OF SEPARATE DOSAGES: 1

REACTIONS (1)
  - Drug ineffective [Not Recovered/Not Resolved]
